FAERS Safety Report 13410645 (Version 4)
Quarter: 2023Q1

REPORT INFORMATION
  Report Type: Spontaneous
  Country: US (occurrence: US)
  Receive Date: 20170406
  Receipt Date: 20230124
  Transmission Date: 20230418
  Serious: No
  Sender: FDA-Public Use
  Company Number: US-JNJFOC-20170227585

PATIENT
  Sex: Male

DRUGS (9)
  1. RISPERDAL [Suspect]
     Active Substance: RISPERIDONE
     Indication: Bipolar disorder
     Dosage: AS AND WHEN NECESSARY (PRN)
     Route: 048
     Dates: start: 20000718
  2. RISPERDAL [Suspect]
     Active Substance: RISPERIDONE
     Indication: Attention deficit hyperactivity disorder
     Dosage: 0.25 MG QHSX2NIGHT AND 0.5 MGX1WEEK AND 1MGX A WEEK AND 2 MGX1 WEEK
     Route: 048
     Dates: start: 20001019
  3. RISPERDAL [Suspect]
     Active Substance: RISPERIDONE
     Dosage: QHS
     Route: 048
     Dates: start: 20001116, end: 20010112
  4. RISPERDAL [Suspect]
     Active Substance: RISPERIDONE
     Dosage: QHS
     Route: 048
     Dates: start: 20010201, end: 20010403
  5. RISPERDAL [Suspect]
     Active Substance: RISPERIDONE
     Dosage: IN VARYING DOSES OF 2 MG, 3 MG AT BEDTIME
     Route: 048
     Dates: start: 20010505, end: 20030514
  6. RISPERDAL [Suspect]
     Active Substance: RISPERIDONE
     Route: 048
     Dates: start: 20010913, end: 20011109
  7. RISPERDAL [Suspect]
     Active Substance: RISPERIDONE
     Dosage: IN VARYING DOSES OF 2 MG AND 3 MG AT BEDTIME
     Route: 048
     Dates: start: 20011013, end: 20021031
  8. RISPERDAL [Suspect]
     Active Substance: RISPERIDONE
     Dosage: IN VARYING DOSES OF 4 MG HALF AT 3 PM AND 01 AT BEDTIME, AND 2 MG THRICE DAILY (2 MG TWICE DAILY AND
     Route: 048
     Dates: start: 20030607, end: 20031007
  9. RISPERDAL [Suspect]
     Active Substance: RISPERIDONE
     Route: 048
     Dates: end: 20031103

REACTIONS (5)
  - Emotional distress [Unknown]
  - Gynaecomastia [Unknown]
  - Weight increased [Recovering/Resolving]
  - Tremor [Recovered/Resolved]
  - Off label use [Unknown]

NARRATIVE: CASE EVENT DATE: 20020101
